FAERS Safety Report 6671876-2 (Version None)
Quarter: 2010Q2

REPORT INFORMATION
  Report Type: 
  Country: None (occurrence: None)
  Receive Date: 20100407
  Receipt Date: 20100329
  Transmission Date: 20101027
  Serious: Yes (Other)
  Sender: FDA-Public Use
  Company Number: US-PFIZER INC-2010040140

PATIENT
  Sex: Male
  Weight: 77.1 kg

DRUGS (5)
  1. LIPITOR [Suspect]
     Indication: CORONARY ARTERY BYPASS
     Dosage: 20MG, DAILY
     Route: 048
  2. LIPITOR [Suspect]
     Dosage: 40 MG, 1X/DAY
     Route: 048
     Dates: start: 20080101
  3. ACETYLSALICYLIC ACID [Concomitant]
     Indication: CORONARY ARTERY BYPASS
     Dosage: 81 MG, 1X/DAY
     Route: 048
  4. METOPROLOL [Concomitant]
     Indication: BLOOD PRESSURE
     Dosage: 25 MG, 2X/DAY
     Route: 048
  5. FISH OIL [Concomitant]
     Dosage: 1200 MG, 1X/DAY
     Route: 048

REACTIONS (2)
  - DIPLOPIA [None]
  - MYOPIA [None]
